FAERS Safety Report 19263456 (Version 5)
Quarter: 2021Q3

REPORT INFORMATION
  Report Type: Spontaneous
  Country: US (occurrence: US)
  Receive Date: 20210517
  Receipt Date: 20210924
  Transmission Date: 20211014
  Serious: No
  Sender: FDA-Public Use
  Company Number: US-GLAXOSMITHKLINE-US2021103026

PATIENT
  Age: 66 Year
  Sex: Female

DRUGS (5)
  1. ZEJULA [Suspect]
     Active Substance: NIRAPARIB
     Indication: OVARIAN CANCER
     Dosage: 200 MG, QD
     Dates: start: 20210506
  2. ZEJULA [Suspect]
     Active Substance: NIRAPARIB
     Dosage: 200 MG, QD
  3. ZEJULA [Suspect]
     Active Substance: NIRAPARIB
     Dosage: 200MG, QD, PM
  4. PAIN MEDICINE (MEDICATION UNKNOWN) [Suspect]
     Active Substance: UNSPECIFIED INGREDIENT
     Indication: PRODUCT USED FOR UNKNOWN INDICATION
     Dosage: UNK
  5. ZEJULA [Suspect]
     Active Substance: NIRAPARIB
     Dosage: 200 MG, QD (100 MG BID)
     Route: 048
     Dates: start: 202105

REACTIONS (16)
  - Oropharyngeal pain [Not Recovered/Not Resolved]
  - Cough [Unknown]
  - Upper-airway cough syndrome [Unknown]
  - Abdominal discomfort [Unknown]
  - Nausea [Recovering/Resolving]
  - Decreased appetite [Recovered/Resolved with Sequelae]
  - Blood pressure systolic increased [Recovered/Resolved with Sequelae]
  - Positron emission tomogram abnormal [Unknown]
  - Constipation [Unknown]
  - Headache [Recovered/Resolved with Sequelae]
  - Foot fracture [Unknown]
  - Dizziness [Recovered/Resolved]
  - Fatigue [Recovering/Resolving]
  - Oral pain [Unknown]
  - Hypertension [Unknown]
  - Asthenia [Not Recovered/Not Resolved]

NARRATIVE: CASE EVENT DATE: 202105
